FAERS Safety Report 13089604 (Version 5)
Quarter: 2024Q4

REPORT INFORMATION
  Report Type: Spontaneous
  Country: US (occurrence: US)
  Receive Date: 20170105
  Receipt Date: 20241029
  Transmission Date: 20250115
  Serious: Yes (Hospitalization, Other)
  Sender: PFIZER
  Company Number: US-MLMSERVICE-20161229-0555438-1

PATIENT
  Age: 38 Year
  Sex: Female

DRUGS (2)
  1. MEDROXYPROGESTERONE ACETATE [Interacting]
     Active Substance: MEDROXYPROGESTERONE ACETATE
     Indication: Menometrorrhagia
     Dosage: UNK
  2. KETOCONAZOLE [Interacting]
     Active Substance: KETOCONAZOLE
     Indication: Rash
     Dosage: LIBERAL AMOUNTS
     Route: 061

REACTIONS (2)
  - Drug interaction [Recovering/Resolving]
  - Adrenal insufficiency [Recovering/Resolving]
